FAERS Safety Report 23572848 (Version 2)
Quarter: 2024Q2

REPORT INFORMATION
  Report Type: Spontaneous
  Country: AU (occurrence: AU)
  Receive Date: 20240227
  Receipt Date: 20240509
  Transmission Date: 20240716
  Serious: Yes (Other)
  Sender: FDA-Public Use
  Company Number: AU-Vifor Pharma-VIT-2024-01615

PATIENT

DRUGS (3)
  1. KORSUVA [Suspect]
     Active Substance: DIFELIKEFALIN ACETATE
     Indication: Product used for unknown indication
     Dosage: HAD A TOTAL OF 3 DOSES
  2. KORSUVA [Suspect]
     Active Substance: DIFELIKEFALIN ACETATE
     Indication: Pruritus
     Dosage: HAD A TOTAL OF 3 DOSES
  3. KORSUVA [Suspect]
     Active Substance: DIFELIKEFALIN ACETATE
     Indication: Product used for unknown indication

REACTIONS (3)
  - Hallucination [Recovering/Resolving]
  - Asthenia [Recovering/Resolving]
  - Dizziness [Recovered/Resolved]
